FAERS Safety Report 7632017-8 (Version None)
Quarter: 2011Q3

REPORT INFORMATION
  Report Type: 
  Country: None (occurrence: None)
  Receive Date: 20110725
  Receipt Date: 20101208
  Transmission Date: 20111222
  Serious: No
  Sender: FDA-Public Use
  Company Number: US-BRISTOL-MYERS SQUIBB COMPANY-14864847

PATIENT
  Age: 60 Year
  Sex: Female
  Weight: 82 kg

DRUGS (7)
  1. WARFARIN SODIUM [Suspect]
     Indication: CARDIAC OPERATION
     Dates: start: 20090101, end: 20090101
  2. DOXYCYCLINE [Concomitant]
     Indication: INFECTION
  3. COUMADIN [Suspect]
     Dosage: DOSE CHANGED TO 7.5 MG
     Dates: start: 20081001
  4. POTASSIUM [Concomitant]
  5. LISINOPRIL [Concomitant]
  6. SINGULAIR [Concomitant]
  7. TIKOSYN [Concomitant]

REACTIONS (8)
  - WEIGHT INCREASED [None]
  - RASH [None]
  - ABASIA [None]
  - BLUE TOE SYNDROME [None]
  - PRURITUS [None]
  - INTERNATIONAL NORMALISED RATIO ABNORMAL [None]
  - DYSPNOEA [None]
  - FATIGUE [None]
